FAERS Safety Report 8818431 (Version 2)
Quarter: 2012Q4

REPORT INFORMATION
  Report Type: Report from Study
  Country: GB (occurrence: GB)
  Receive Date: 20121002
  Receipt Date: 20121011
  Transmission Date: 20130627
  Serious: Yes (Life-Threatening, Hospitalization, Other)
  Sender: FDA-Public Use
  Company Number: GB-AMGEN-GBRCT2012055448

PATIENT
  Age: 27 Year
  Sex: Male
  Weight: 86 kg

DRUGS (10)
  1. PEGFILGRASTIM [Suspect]
     Indication: TESTICULAR GERM CELL CANCER METASTATIC
     Dosage: 6 mg, UNK
     Dates: start: 20120528
  2. PACLITAXEL [Concomitant]
     Dosage: 350 mg, UNK
     Dates: start: 20120522
  3. CISPLATIN [Concomitant]
     Dosage: 40 mg, UNK
     Dates: start: 20120522
  4. IFOSFAMIDE [Concomitant]
     Dosage: 2 g, UNK
     Dates: start: 20120523
  5. GEMCITABINE [Concomitant]
     Dosage: 2400 mg, UNK
     Dates: start: 20120522
  6. LANSOPRAZOLE [Concomitant]
     Dosage: 30 mg, qd
     Route: 048
  7. PHENYTOIN [Concomitant]
     Dosage: 300 mg, qd
     Route: 048
     Dates: start: 20120522
  8. ADCAL D3 [Concomitant]
     Dosage: UNK UNK, qd
     Route: 048
  9. PARACETAMOL [Concomitant]
     Dosage: UNK
  10. CLEXANE [Concomitant]
     Dosage: 40 mg, UNK
     Dates: start: 201111, end: 20120605

REACTIONS (5)
  - Thrombocytopenia [Recovered/Resolved]
  - Convulsion [Recovered/Resolved]
  - Pulmonary embolism [Recovered/Resolved with Sequelae]
  - Deep vein thrombosis [Recovered/Resolved with Sequelae]
  - Cerebral haemorrhage [Recovered/Resolved]
